FAERS Safety Report 25486924 (Version 1)
Quarter: 2025Q2

REPORT INFORMATION
  Report Type: Spontaneous
  Country: CA (occurrence: CA)
  Receive Date: 20250627
  Receipt Date: 20250627
  Transmission Date: 20250717
  Serious: Yes (Hospitalization, Other)
  Sender: TEVA
  Company Number: CA-TEVA-VS-3344247

PATIENT
  Age: 12 Year
  Sex: Male

DRUGS (64)
  1. OCTREOTIDE ACETATE [Suspect]
     Active Substance: OCTREOTIDE ACETATE
     Indication: Growth hormone-producing pituitary tumour
     Route: 065
  2. OCTREOTIDE ACETATE [Suspect]
     Active Substance: OCTREOTIDE ACETATE
     Indication: Growth hormone-producing pituitary tumour
     Route: 030
  3. OCTREOTIDE ACETATE [Suspect]
     Active Substance: OCTREOTIDE ACETATE
     Indication: Growth hormone-producing pituitary tumour
     Route: 030
  4. OCTREOTIDE ACETATE [Suspect]
     Active Substance: OCTREOTIDE ACETATE
     Indication: Growth hormone-producing pituitary tumour
     Route: 030
  5. OCTREOTIDE ACETATE [Suspect]
     Active Substance: OCTREOTIDE ACETATE
     Indication: Growth hormone-producing pituitary tumour
     Route: 030
  6. OCTREOTIDE ACETATE [Suspect]
     Active Substance: OCTREOTIDE ACETATE
     Indication: Growth hormone-producing pituitary tumour
     Route: 030
  7. OCTREOTIDE ACETATE [Suspect]
     Active Substance: OCTREOTIDE ACETATE
     Indication: Growth hormone-producing pituitary tumour
     Route: 030
  8. OCTREOTIDE ACETATE [Suspect]
     Active Substance: OCTREOTIDE ACETATE
     Indication: Growth hormone-producing pituitary tumour
     Route: 030
  9. OCTREOTIDE ACETATE [Suspect]
     Active Substance: OCTREOTIDE ACETATE
     Indication: Growth hormone-producing pituitary tumour
     Route: 030
  10. OCTREOTIDE ACETATE [Suspect]
     Active Substance: OCTREOTIDE ACETATE
     Indication: Growth hormone-producing pituitary tumour
     Route: 030
  11. OCTREOTIDE ACETATE [Suspect]
     Active Substance: OCTREOTIDE ACETATE
     Indication: Growth hormone-producing pituitary tumour
     Route: 030
  12. OCTREOTIDE ACETATE [Suspect]
     Active Substance: OCTREOTIDE ACETATE
     Indication: Growth hormone-producing pituitary tumour
     Route: 030
  13. OCTREOTIDE ACETATE [Suspect]
     Active Substance: OCTREOTIDE ACETATE
     Indication: Growth hormone-producing pituitary tumour
     Route: 030
  14. OCTREOTIDE ACETATE [Suspect]
     Active Substance: OCTREOTIDE ACETATE
     Indication: Growth hormone-producing pituitary tumour
     Route: 030
  15. OCTREOTIDE ACETATE [Suspect]
     Active Substance: OCTREOTIDE ACETATE
     Indication: Growth hormone-producing pituitary tumour
     Route: 030
  16. OCTREOTIDE ACETATE [Suspect]
     Active Substance: OCTREOTIDE ACETATE
     Indication: Growth hormone-producing pituitary tumour
     Route: 030
  17. OCTREOTIDE ACETATE [Suspect]
     Active Substance: OCTREOTIDE ACETATE
     Indication: Growth hormone-producing pituitary tumour
     Route: 030
  18. OCTREOTIDE ACETATE [Suspect]
     Active Substance: OCTREOTIDE ACETATE
     Indication: Growth hormone-producing pituitary tumour
     Route: 030
  19. OCTREOTIDE ACETATE [Suspect]
     Active Substance: OCTREOTIDE ACETATE
     Indication: Growth hormone-producing pituitary tumour
     Route: 030
  20. OCTREOTIDE ACETATE [Suspect]
     Active Substance: OCTREOTIDE ACETATE
     Indication: Growth hormone-producing pituitary tumour
     Route: 065
  21. OCTREOTIDE ACETATE [Suspect]
     Active Substance: OCTREOTIDE ACETATE
     Indication: Growth hormone-producing pituitary tumour
     Route: 030
  22. OCTREOTIDE ACETATE [Suspect]
     Active Substance: OCTREOTIDE ACETATE
     Indication: Growth hormone-producing pituitary tumour
     Route: 030
  23. OCTREOTIDE ACETATE [Suspect]
     Active Substance: OCTREOTIDE ACETATE
     Indication: Growth hormone-producing pituitary tumour
     Route: 030
  24. OCTREOTIDE ACETATE [Suspect]
     Active Substance: OCTREOTIDE ACETATE
     Indication: Growth hormone-producing pituitary tumour
     Route: 030
  25. OCTREOTIDE ACETATE [Suspect]
     Active Substance: OCTREOTIDE ACETATE
     Indication: Growth hormone-producing pituitary tumour
     Route: 030
  26. OCTREOTIDE ACETATE [Suspect]
     Active Substance: OCTREOTIDE ACETATE
     Indication: Growth hormone-producing pituitary tumour
     Route: 030
  27. OCTREOTIDE ACETATE [Suspect]
     Active Substance: OCTREOTIDE ACETATE
     Indication: Growth hormone-producing pituitary tumour
     Route: 030
  28. OCTREOTIDE ACETATE [Suspect]
     Active Substance: OCTREOTIDE ACETATE
     Indication: Growth hormone-producing pituitary tumour
     Route: 030
  29. OCTREOTIDE ACETATE [Suspect]
     Active Substance: OCTREOTIDE ACETATE
     Indication: Growth hormone-producing pituitary tumour
     Route: 030
  30. SOMAVERT [Suspect]
     Active Substance: PEGVISOMANT
     Indication: Product used for unknown indication
     Route: 058
  31. SOMAVERT [Suspect]
     Active Substance: PEGVISOMANT
     Indication: Product used for unknown indication
     Route: 058
  32. SOMAVERT [Suspect]
     Active Substance: PEGVISOMANT
     Indication: Product used for unknown indication
     Route: 065
  33. SOMAVERT [Suspect]
     Active Substance: PEGVISOMANT
     Indication: Product used for unknown indication
     Route: 058
  34. SOMAVERT [Suspect]
     Active Substance: PEGVISOMANT
     Indication: Product used for unknown indication
     Route: 058
  35. SOMAVERT [Suspect]
     Active Substance: PEGVISOMANT
     Indication: Product used for unknown indication
     Route: 058
  36. SOMAVERT [Suspect]
     Active Substance: PEGVISOMANT
     Indication: Product used for unknown indication
     Route: 065
  37. SOMAVERT [Suspect]
     Active Substance: PEGVISOMANT
     Indication: Product used for unknown indication
     Route: 065
  38. SOMAVERT [Suspect]
     Active Substance: PEGVISOMANT
     Indication: Product used for unknown indication
     Dosage: DOSE FORM: POWDER FOR SOLUTION SUBCUTANEOUS
     Route: 058
  39. MORPHINE SULFATE [Concomitant]
     Active Substance: MORPHINE SULFATE
     Indication: Product used for unknown indication
     Route: 065
  40. SERTRALINE HYDROCHLORIDE [Suspect]
     Active Substance: SERTRALINE HYDROCHLORIDE
     Indication: Product used for unknown indication
     Route: 065
  41. SERTRALINE HYDROCHLORIDE [Suspect]
     Active Substance: SERTRALINE HYDROCHLORIDE
     Indication: Product used for unknown indication
     Route: 065
  42. SERTRALINE HYDROCHLORIDE [Suspect]
     Active Substance: SERTRALINE HYDROCHLORIDE
     Indication: Product used for unknown indication
     Route: 065
  43. ANDRODERM [Concomitant]
     Active Substance: TESTOSTERONE
     Indication: Product used for unknown indication
     Route: 065
  44. CORTISONE [Concomitant]
     Active Substance: CORTISONE
     Indication: Product used for unknown indication
     Route: 065
  45. CORTEF [Concomitant]
     Active Substance: HYDROCORTISONE
     Indication: Product used for unknown indication
     Route: 065
  46. MELATONIN [Concomitant]
     Active Substance: MELATONIN
     Indication: Product used for unknown indication
     Route: 065
  47. PROPRANOLOL HYDROCHLORIDE [Suspect]
     Active Substance: PROPRANOLOL HYDROCHLORIDE
     Indication: Tremor
     Route: 048
  48. SYNTHROID [Concomitant]
     Active Substance: LEVOTHYROXINE SODIUM
     Indication: Product used for unknown indication
     Route: 065
  49. STRATTERA [Concomitant]
     Active Substance: ATOMOXETINE HYDROCHLORIDE
     Indication: Product used for unknown indication
     Route: 065
  50. CARBAMAZEPINE [Concomitant]
     Active Substance: CARBAMAZEPINE
     Indication: Product used for unknown indication
     Route: 065
  51. ATOMOXETINE [Concomitant]
     Active Substance: ATOMOXETINE
     Indication: Product used for unknown indication
     Route: 065
  52. ATOMOXETINE [Concomitant]
     Active Substance: ATOMOXETINE
     Indication: Product used for unknown indication
     Route: 065
  53. TESTOSTERONE [Concomitant]
     Active Substance: TESTOSTERONE
     Indication: Product used for unknown indication
     Route: 065
  54. PRIMIDONE [Concomitant]
     Active Substance: PRIMIDONE
     Indication: Pituitary tumour
     Route: 065
  55. PRIMIDONE [Concomitant]
     Active Substance: PRIMIDONE
     Indication: Pituitary tumour
     Route: 065
  56. PRIMIDONE [Concomitant]
     Active Substance: PRIMIDONE
     Indication: Pituitary tumour
     Route: 065
  57. PEGVISOMANT [Concomitant]
     Active Substance: PEGVISOMANT
     Indication: Product used for unknown indication
     Route: 065
  58. PEG 3350 [Concomitant]
     Active Substance: POLYETHYLENE GLYCOL 3350
     Indication: Constipation
     Dosage: DOSE FORM: POWDER FOR SOLUTION ORAL
     Route: 065
  59. RISPERIDONE [Suspect]
     Active Substance: RISPERIDONE
     Indication: Product used for unknown indication
     Route: 065
  60. HYDROCORTISONE ACETATE [Concomitant]
     Active Substance: HYDROCORTISONE ACETATE
     Indication: Product used for unknown indication
     Route: 065
  61. PROPRANOLOL HYDROCHLORIDE [Suspect]
     Active Substance: PROPRANOLOL HYDROCHLORIDE
     Indication: Tremor
     Route: 065
  62. PROPRANOLOL HYDROCHLORIDE [Suspect]
     Active Substance: PROPRANOLOL HYDROCHLORIDE
     Indication: Tremor
     Route: 065
  63. PROPRANOLOL HYDROCHLORIDE [Suspect]
     Active Substance: PROPRANOLOL HYDROCHLORIDE
     Indication: Tremor
     Route: 048
  64. PROPRANOLOL HYDROCHLORIDE [Suspect]
     Active Substance: PROPRANOLOL HYDROCHLORIDE
     Indication: Tremor
     Route: 048

REACTIONS (42)
  - Insulin-like growth factor increased [Recovered/Resolved]
  - Pyrexia [Recovered/Resolved]
  - Tremor [Recovered/Resolved]
  - Stress [Recovered/Resolved]
  - Hepatotoxicity [Recovered/Resolved]
  - Nausea [Recovered/Resolved]
  - Needle issue [Recovered/Resolved]
  - Eye movement disorder [Recovered/Resolved]
  - Agitation [Recovered/Resolved]
  - Product use issue [Recovered/Resolved]
  - Diarrhoea [Recovered/Resolved]
  - Fall [Recovered/Resolved]
  - Treatment failure [Recovered/Resolved]
  - Brain injury [Recovered/Resolved]
  - Hepatic enzyme increased [Recovered/Resolved]
  - Helicobacter infection [Recovered/Resolved]
  - Strabismus [Recovered/Resolved]
  - Infrequent bowel movements [Recovered/Resolved]
  - Vomiting [Recovered/Resolved]
  - Chest pain [Recovered/Resolved]
  - Gastric hypomotility [Recovered/Resolved]
  - Injection site pain [Recovered/Resolved]
  - Contusion [Recovered/Resolved]
  - Seizure [Recovered/Resolved]
  - Shunt occlusion [Recovered/Resolved]
  - Swelling [Recovered/Resolved]
  - Obsessive-compulsive disorder [Recovered/Resolved]
  - Breath odour [Recovered/Resolved]
  - Blood growth hormone increased [Recovered/Resolved]
  - Gait disturbance [Recovered/Resolved]
  - Cough [Recovered/Resolved]
  - Viral diarrhoea [Recovered/Resolved]
  - Neoplasm progression [Recovered/Resolved]
  - Injection site haemorrhage [Recovered/Resolved]
  - Eructation [Recovered/Resolved]
  - Foot deformity [Recovered/Resolved]
  - Influenza [Recovered/Resolved]
  - Shunt malfunction [Recovered/Resolved]
  - Device malfunction [Recovered/Resolved]
  - Constipation [Recovered/Resolved]
  - Growth hormone-producing pituitary tumour [Recovered/Resolved]
  - Abdominal pain [Recovered/Resolved]
